FAERS Safety Report 12897348 (Version 1)
Quarter: 2016Q4

REPORT INFORMATION
  Report Type: Spontaneous
  Country: US (occurrence: US)
  Receive Date: 20161031
  Receipt Date: 20161031
  Transmission Date: 20170207
  Serious: No
  Sender: FDA-Public Use
  Company Number: US-009507513-1610USA014098

PATIENT
  Age: 74 Year
  Sex: Female
  Weight: 63.49 kg

DRUGS (1)
  1. KEYTRUDA [Suspect]
     Active Substance: PEMBROLIZUMAB
     Indication: SMALL CELL CARCINOMA
     Dosage: UNK
     Route: 042
     Dates: start: 20161018

REACTIONS (2)
  - Dysgeusia [Unknown]
  - Alopecia [Unknown]

NARRATIVE: CASE EVENT DATE: 20161022
